FAERS Safety Report 8157426-2 (Version None)
Quarter: 2012Q1

REPORT INFORMATION
  Report Type: 
  Country: None (occurrence: None)
  Receive Date: 20120222
  Receipt Date: 20120220
  Transmission Date: 20120608
  Serious: Yes (Other)
  Sender: FDA-Public Use
  Company Number: US-PFIZER INC-2012044831

PATIENT
  Sex: Female
  Weight: 81.633 kg

DRUGS (2)
  1. EFFEXOR [Suspect]
     Indication: ANXIETY
     Dosage: 75 MG, 1X/DAY
     Route: 048
     Dates: start: 19850101
  2. EFFEXOR [Suspect]
     Indication: DEPRESSION
     Dosage: UNK
     Route: 048
     Dates: end: 20080101

REACTIONS (6)
  - DEPRESSION [None]
  - AGGRESSION [None]
  - DIABETES MELLITUS [None]
  - ANXIETY [None]
  - WITHDRAWAL SYNDROME [None]
  - HEADACHE [None]
